FAERS Safety Report 5277757-3 (Version None)
Quarter: 2007Q1

REPORT INFORMATION
  Report Type: 
  Country: None (occurrence: None)
  Receive Date: 20070321
  Receipt Date: 20070313
  Transmission Date: 20070707
  Serious: Yes (Hospitalization)
  Sender: FDA-Public Use
  Company Number: AMI0001488

PATIENT
  Sex: Male

DRUGS (1)
  1. CUPRIMINE [Suspect]
     Dosage: 500 MG PO QID
     Route: 048
     Dates: start: 20070309

REACTIONS (2)
  - CEREBROVASCULAR ACCIDENT [None]
  - CONVULSION [None]
